FAERS Safety Report 16012739 (Version 2)
Quarter: 2019Q1

REPORT INFORMATION
  Report Type: Spontaneous
  Country: JP (occurrence: JP)
  Receive Date: 20190227
  Receipt Date: 20190306
  Transmission Date: 20190418
  Serious: Yes (Death, Life-Threatening)
  Sender: FDA-Public Use
  Company Number: JP-TEVA-2019-JP-1016322

PATIENT
  Age: 8 Decade
  Sex: Male

DRUGS (2)
  1. BENDAMUSTINE HYDROCHLORIDE. [Suspect]
     Active Substance: BENDAMUSTINE HYDROCHLORIDE
     Indication: MANTLE CELL LYMPHOMA
     Dosage: 90MG/M2X1/DAY, CYCLIC
     Route: 042
     Dates: start: 2017
  2. RITUXIMAB. [Suspect]
     Active Substance: RITUXIMAB
     Indication: MANTLE CELL LYMPHOMA
     Dosage: 375 MG/M2 DAILY; 375 MG/M2, ONCE DAILY (CYCLIC)
     Route: 041
     Dates: start: 2017

REACTIONS (4)
  - Seizure [Fatal]
  - Prescribed underdose [Unknown]
  - Lymphocyte count decreased [Unknown]
  - Encephalitis autoimmune [Fatal]

NARRATIVE: CASE EVENT DATE: 2017
